FAERS Safety Report 11736324 (Version 2)
Quarter: 2016Q1

REPORT INFORMATION
  Report Type: Spontaneous
  Country: US (occurrence: US)
  Receive Date: 20151113
  Receipt Date: 20160115
  Transmission Date: 20160525
  Serious: No
  Sender: FDA-Public Use
  Company Number: US-JNJFOC-20151018076

PATIENT
  Age: 47 Year
  Sex: Male
  Weight: 124.74 kg

DRUGS (2)
  1. SIMPONI [Suspect]
     Active Substance: GOLIMUMAB
     Indication: COLITIS ULCERATIVE
     Route: 058
     Dates: start: 20151014
  2. SIMPONI [Suspect]
     Active Substance: GOLIMUMAB
     Indication: IRRITABLE BOWEL SYNDROME
     Route: 058
     Dates: start: 20151014

REACTIONS (5)
  - Accidental exposure to product [Recovered/Resolved]
  - Product use issue [Unknown]
  - Off label use [Unknown]
  - Drug dose omission [Recovered/Resolved]
  - Device malfunction [Not Recovered/Not Resolved]

NARRATIVE: CASE EVENT DATE: 20151014
